FAERS Safety Report 6985152-1 (Version None)
Quarter: 2010Q3

REPORT INFORMATION
  Report Type: 
  Country: None (occurrence: None)
  Receive Date: 20100915
  Receipt Date: 20100908
  Transmission Date: 20110219
  Serious: Yes (Hospitalization)
  Sender: FDA-Public Use
  Company Number: JP-ROCHE-714425

PATIENT
  Sex: Female

DRUGS (39)
  1. TOCILIZUMAB [Suspect]
     Indication: RHEUMATOID ARTHRITIS
     Route: 041
     Dates: start: 20080625, end: 20080625
  2. TOCILIZUMAB [Suspect]
     Route: 041
     Dates: start: 20080725, end: 20080725
  3. TOCILIZUMAB [Suspect]
     Route: 041
     Dates: start: 20080821, end: 20080821
  4. TOCILIZUMAB [Suspect]
     Route: 041
     Dates: start: 20080918, end: 20080918
  5. TOCILIZUMAB [Suspect]
     Route: 041
     Dates: start: 20081016, end: 20081016
  6. TOCILIZUMAB [Suspect]
     Route: 041
     Dates: start: 20081113, end: 20081113
  7. TOCILIZUMAB [Suspect]
     Route: 041
     Dates: start: 20081211, end: 20081211
  8. TOCILIZUMAB [Suspect]
     Route: 041
     Dates: start: 20090108, end: 20090601
  9. TOCILIZUMAB [Suspect]
     Route: 041
     Dates: start: 20090723, end: 20090723
  10. TOCILIZUMAB [Suspect]
     Route: 041
     Dates: start: 20090820, end: 20090820
  11. TOCILIZUMAB [Suspect]
     Route: 041
     Dates: start: 20090917, end: 20090917
  12. TOCILIZUMAB [Suspect]
     Route: 041
     Dates: start: 20091015, end: 20091015
  13. TOCILIZUMAB [Suspect]
     Route: 041
     Dates: start: 20091112, end: 20091112
  14. TOCILIZUMAB [Suspect]
     Route: 041
     Dates: start: 20091210, end: 20091210
  15. TOCILIZUMAB [Suspect]
     Route: 041
     Dates: start: 20100107, end: 20100107
  16. TOCILIZUMAB [Suspect]
     Route: 041
     Dates: start: 20100204, end: 20100204
  17. ISCOTIN [Concomitant]
     Route: 048
     Dates: start: 20080501
  18. PREDONINE [Concomitant]
     Route: 048
     Dates: start: 20080501, end: 20080516
  19. PREDONINE [Concomitant]
     Route: 048
     Dates: start: 20080607, end: 20080620
  20. PREDONINE [Concomitant]
     Route: 048
     Dates: start: 20080621, end: 20080627
  21. PREDONINE [Concomitant]
     Route: 048
     Dates: start: 20080628, end: 20080704
  22. PREDONINE [Concomitant]
     Route: 048
     Dates: start: 20080705, end: 20080713
  23. PREDONINE [Concomitant]
     Route: 048
     Dates: start: 20080714, end: 20080725
  24. PREDONINE [Concomitant]
     Route: 048
     Dates: start: 20080726, end: 20080807
  25. PREDONINE [Concomitant]
     Route: 048
     Dates: start: 20080808, end: 20080820
  26. PREDNISOLONE [Concomitant]
     Route: 048
     Dates: start: 20080821, end: 20080917
  27. PREDNISOLONE [Concomitant]
     Route: 048
     Dates: start: 20080918, end: 20081112
  28. PREDNISOLONE [Concomitant]
     Route: 048
     Dates: start: 20081113, end: 20081211
  29. VOLTAREN [Concomitant]
     Route: 048
     Dates: start: 20080401, end: 20080807
  30. TAKEPRON [Concomitant]
     Route: 048
     Dates: start: 20080611, end: 20080807
  31. TAKEPRON [Concomitant]
     Route: 048
     Dates: start: 20080808
  32. FOSAMAX [Concomitant]
     Dosage: DRUG: FOSAMAC 35MG(ALENDRONATE SODIUM HYDRATE)
     Route: 048
     Dates: start: 20080608, end: 20080917
  33. LENDORMIN [Concomitant]
     Route: 048
     Dates: start: 20080614
  34. PURSENNID [Concomitant]
     Route: 048
     Dates: start: 20080617
  35. CELCOX [Concomitant]
     Route: 048
     Dates: start: 20080808
  36. EVISTA [Concomitant]
     Route: 048
     Dates: start: 20080918, end: 20100203
  37. COTRIM [Concomitant]
     Route: 048
     Dates: start: 20081016, end: 20100203
  38. RESTAMIN [Concomitant]
     Route: 048
     Dates: start: 20080918, end: 20100107
  39. MUCOSTA [Concomitant]
     Route: 048
     Dates: start: 20080401

REACTIONS (1)
  - BREAST CANCER [None]
